FAERS Safety Report 7675554-2 (Version None)
Quarter: 2011Q3

REPORT INFORMATION
  Report Type: 
  Country: None (occurrence: None)
  Receive Date: 20110810
  Receipt Date: 20110729
  Transmission Date: 20111222
  Serious: No
  Sender: FDA-Public Use
  Company Number: IE-AMGEN-IRLSP2011035955

PATIENT
  Age: 78 Year
  Sex: Female

DRUGS (9)
  1. LASIX [Concomitant]
  2. CARDICOR [Concomitant]
  3. CARDURA [Concomitant]
  4. IRBESARTAN [Concomitant]
  5. ASPIRIN [Concomitant]
  6. GALFER [Concomitant]
  7. CRESTOR [Concomitant]
  8. ISOSORBIDE DINITRATE [Concomitant]
  9. ARANESP [Suspect]
     Indication: RENAL FAILURE CHRONIC
     Dosage: 20 A?G, Q2WK
     Route: 058
     Dates: start: 20110630, end: 20110714

REACTIONS (1)
  - EPISTAXIS [None]
